FAERS Safety Report 11413777 (Version 2)
Quarter: 2016Q1

REPORT INFORMATION
  Report Type: Spontaneous
  Country: JP (occurrence: JP)
  Receive Date: 20150824
  Receipt Date: 20160104
  Transmission Date: 20160525
  Serious: Yes (Hospitalization, Other)
  Sender: FDA-Public Use
  Company Number: JP-BAXALTA-2015BLT001215

PATIENT
  Age: 19 Year
  Sex: Male
  Weight: 82 kg

DRUGS (17)
  1. ADVATE [Suspect]
     Active Substance: ANTIHEMOPHILIC FACTOR, HUMAN RECOMBINANT
     Indication: FACTOR VIII DEFICIENCY
     Dosage: 4000 IU, 1X A DAY
     Route: 042
     Dates: start: 20150612
  2. ADVATE [Suspect]
     Active Substance: ANTIHEMOPHILIC FACTOR, HUMAN RECOMBINANT
     Dosage: 3000 IU, ONCE/3 DAYS
     Route: 042
     Dates: start: 20150804, end: 20150813
  3. ADVATE [Suspect]
     Active Substance: ANTIHEMOPHILIC FACTOR, HUMAN RECOMBINANT
     Dosage: 4000 IU, FOR 30 MINS  2X A DAY
     Route: 042
     Dates: start: 20150615, end: 20150617
  4. ADVATE [Suspect]
     Active Substance: ANTIHEMOPHILIC FACTOR, HUMAN RECOMBINANT
     Dosage: 2000 IU, (FOR 5 MINS) 2X A DAY
     Route: 042
     Dates: start: 20150617, end: 20150623
  5. ADVATE [Suspect]
     Active Substance: ANTIHEMOPHILIC FACTOR, HUMAN RECOMBINANT
     Indication: HAEMORRHAGE PROPHYLAXIS
     Dosage: 2000 IU, 2-3 TIMES A WEEK
     Route: 042
  6. ADVATE [Suspect]
     Active Substance: ANTIHEMOPHILIC FACTOR, HUMAN RECOMBINANT
     Dosage: 2000 IU, 1X A DAY
     Route: 042
     Dates: start: 20150629, end: 20150629
  7. ADVATE [Suspect]
     Active Substance: ANTIHEMOPHILIC FACTOR, HUMAN RECOMBINANT
     Dosage: 3000 IU, ONCE/3 DAYS
     Route: 042
     Dates: start: 20150816, end: 20150824
  8. ADVATE [Suspect]
     Active Substance: ANTIHEMOPHILIC FACTOR, HUMAN RECOMBINANT
     Dosage: 3000 IU, (FOR 5 MINS)  1X A DAY
     Route: 042
     Dates: start: 20150624, end: 20150628
  9. ADVATE [Suspect]
     Active Substance: ANTIHEMOPHILIC FACTOR, HUMAN RECOMBINANT
     Dosage: 3000 IU, ONCE/2 DAYS
     Route: 042
     Dates: start: 20150702, end: 20150706
  10. ADVATE [Suspect]
     Active Substance: ANTIHEMOPHILIC FACTOR, HUMAN RECOMBINANT
     Dosage: 3000 IU, ONCE/2 DAYS
     Route: 042
     Dates: start: 20150722, end: 20150726
  11. ADVATE [Suspect]
     Active Substance: ANTIHEMOPHILIC FACTOR, HUMAN RECOMBINANT
     Dosage: 1000 IU, (FOR 5 MINS) 1X A DAY
     Route: 042
     Dates: start: 20150629, end: 20150629
  12. ADVATE [Suspect]
     Active Substance: ANTIHEMOPHILIC FACTOR, HUMAN RECOMBINANT
     Dosage: 3000 IU, ONCE/2 DAYS
     Route: 042
     Dates: start: 20150710, end: 20150720
  13. ADVATE [Suspect]
     Active Substance: ANTIHEMOPHILIC FACTOR, HUMAN RECOMBINANT
     Dosage: UNK
     Route: 042
     Dates: start: 20150702, end: 20150706
  14. ADVATE [Suspect]
     Active Substance: ANTIHEMOPHILIC FACTOR, HUMAN RECOMBINANT
     Indication: HAEMOSTASIS
     Dosage: 8000 IU, ONCE (CONTINUOUS FOR 24 HOURS)
     Route: 042
     Dates: start: 20150612, end: 20150615
  15. ADVATE [Suspect]
     Active Substance: ANTIHEMOPHILIC FACTOR, HUMAN RECOMBINANT
     Dosage: 3000 IU, ONCE/2 DAYS
     Route: 042
     Dates: start: 20150708, end: 20150708
  16. ADVATE [Suspect]
     Active Substance: ANTIHEMOPHILIC FACTOR, HUMAN RECOMBINANT
     Dosage: 3000 IU, ONCE/3 DAYS
     Route: 042
     Dates: start: 20150729, end: 20150801
  17. ADVATE [Suspect]
     Active Substance: ANTIHEMOPHILIC FACTOR, HUMAN RECOMBINANT
     Dosage: 3000 IU, 1X A DAY
     Route: 042
     Dates: start: 20150825, end: 20150902

REACTIONS (2)
  - Factor VIII inhibition [Recovered/Resolved]
  - Tibia fracture [Unknown]

NARRATIVE: CASE EVENT DATE: 201506
